FAERS Safety Report 22219539 (Version 1)
Quarter: 2023Q2

REPORT INFORMATION
  Report Type: Spontaneous
  Country: US (occurrence: US)
  Receive Date: 20230417
  Receipt Date: 20230417
  Transmission Date: 20230722
  Serious: Yes (Hospitalization, Other)
  Sender: FDA-Public Use
  Company Number: US-ORGANON-O2304USA001096

PATIENT
  Sex: Female

DRUGS (1)
  1. NEXPLANON [Suspect]
     Active Substance: ETONOGESTREL
     Dosage: 1 IMPLANT OF 68 MG EVERY 3 YEARS
     Route: 059
     Dates: start: 2020, end: 2023

REACTIONS (3)
  - Ruptured ectopic pregnancy [Recovered/Resolved]
  - Ectopic pregnancy with contraceptive device [Recovered/Resolved]
  - Unintended pregnancy [Recovered/Resolved]

NARRATIVE: CASE EVENT DATE: 20230101
